FAERS Safety Report 14535066 (Version 1)
Quarter: 2018Q1

REPORT INFORMATION
  Report Type: Spontaneous
  Country: US (occurrence: US)
  Receive Date: 20180214
  Receipt Date: 20180214
  Transmission Date: 20180509
  Serious: Yes (Life-Threatening)
  Sender: FDA-Public Use
  Company Number: None

PATIENT
  Age: 62 Year
  Sex: Male
  Weight: 101.25 kg

DRUGS (3)
  1. GLIMEPIRIDE 4 MG TABLETS [Suspect]
     Active Substance: GLIMEPIRIDE
     Indication: BLOOD GLUCOSE INCREASED
     Dosage: ?          QUANTITY:1 TABLET(S);?
     Route: 048
     Dates: start: 20160622, end: 20160808
  2. INSULIN [Concomitant]
     Active Substance: INSULIN NOS
  3. BLOOD SUGAR MONITOR [Concomitant]

REACTIONS (1)
  - Presyncope [None]

NARRATIVE: CASE EVENT DATE: 20160622
